FAERS Safety Report 4475458-2 (Version None)
Quarter: 2004Q4

REPORT INFORMATION
  Report Type: 
  Country: None (occurrence: None)
  Receive Date: 20041015
  Receipt Date: 20041011
  Transmission Date: 20050328
  Serious: Yes (Other)
  Sender: FDA-Public Use
  Company Number: GB-ROCHE-383043

PATIENT
  Age: 53 Year
  Sex: Female
  Weight: 84 kg

DRUGS (6)
  1. XENICAL [Suspect]
     Indication: OBESITY
     Route: 048
     Dates: start: 20040825, end: 20040910
  2. RAMIPRIL [Concomitant]
     Route: 048
     Dates: start: 20040315
  3. FLUVASTATIN [Concomitant]
     Route: 048
     Dates: start: 20040715
  4. CLOPIDOGREL [Concomitant]
     Route: 048
     Dates: start: 20031215
  5. BENDROFLUAZIDE [Concomitant]
     Route: 048
     Dates: start: 20031215
  6. OXYTETRACYCLINE [Concomitant]
     Indication: ROSACEA
     Route: 048

REACTIONS (1)
  - TRANSIENT ISCHAEMIC ATTACK [None]
